FAERS Safety Report 15954980 (Version 1)
Quarter: 2019Q1

REPORT INFORMATION
  Report Type: Spontaneous
  Country: JP (occurrence: JP)
  Receive Date: 20190213
  Receipt Date: 20190213
  Transmission Date: 20190417
  Serious: Yes (Hospitalization)
  Sender: FDA-Public Use
  Company Number: JP-AMGEN-JPNSP2019020950

PATIENT
  Age: 8 Decade
  Sex: Male

DRUGS (3)
  1. EVOCALCET [Suspect]
     Active Substance: EVOCALCET
     Dosage: 2 MG, UNK
     Route: 048
  2. REGPARA [Suspect]
     Active Substance: CINACALCET HYDROCHLORIDE
     Indication: HYPERPARATHYROIDISM SECONDARY
     Dosage: 100 MG, UNK
     Route: 048
     Dates: end: 201811
  3. EVOCALCET [Suspect]
     Active Substance: EVOCALCET
     Indication: HYPERPARATHYROIDISM SECONDARY
     Dosage: 1 MG, UNK
     Route: 048
     Dates: start: 201811

REACTIONS (2)
  - Hypercalcaemia [Unknown]
  - Peripheral embolism [Unknown]

NARRATIVE: CASE EVENT DATE: 201811
